FAERS Safety Report 22116526 (Version 1)
Quarter: 2023Q1

REPORT INFORMATION
  Report Type: Spontaneous
  Country: US (occurrence: None)
  Receive Date: 20230320
  Receipt Date: 20230320
  Transmission Date: 20230417
  Serious: Yes (unspecified)
  Sender: FDA-Public Use
  Company Number: None

PATIENT
  Age: 45 Year
  Sex: Male
  Weight: 91.3 kg

DRUGS (1)
  1. RITUXAN [Suspect]
     Active Substance: RITUXIMAB
     Indication: Polymyositis
     Dates: start: 20230227

REACTIONS (7)
  - Pruritus [None]
  - Urticaria [None]
  - Cough [None]
  - Infusion related reaction [None]
  - Dyspnoea [None]
  - Chest pain [None]
  - Anaphylactic reaction [None]
